FAERS Safety Report 14453375 (Version 1)
Quarter: 2018Q1

REPORT INFORMATION
  Report Type: Other
  Country: None (occurrence: ZM)
  Receive Date: 20180129
  Receipt Date: 20180129
  Transmission Date: 20180509
  Serious: Yes (Other)
  Sender: FDA-Public Use
  Company Number: ZM-POPULATION COUNCIL, INC.-2040959

PATIENT
  Age: 35 Year
  Sex: Female

DRUGS (1)
  1. JADELLE [Suspect]
     Active Substance: LEVONORGESTREL
     Dates: start: 20150612

REACTIONS (3)
  - Drug ineffective [None]
  - Pregnancy with implant contraceptive [Not Recovered/Not Resolved]
  - Amenorrhoea [None]
